FAERS Safety Report 5315524-2 (Version None)
Quarter: 2007Q2

REPORT INFORMATION
  Report Type: 
  Country: None (occurrence: None)
  Receive Date: 20070503
  Receipt Date: 20070425
  Transmission Date: 20071010
  Serious: Yes (Other)
  Sender: FDA-Public Use
  Company Number: GB-AVENTIS-200713754GDDC

PATIENT
  Age: 75 Year
  Sex: Female

DRUGS (7)
  1. METRONIDAZOLE [Suspect]
  2. WARFARIN [Suspect]
     Indication: ATRIAL FLUTTER
     Dosage: DOSE: UNK
  3. BENDROFLUMETHIAZIDE [Concomitant]
  4. IBUPROFEN [Concomitant]
  5. LOSARTAN POSTASSIUM [Concomitant]
  6. PARACETAMOL [Concomitant]
  7. SOTALOL HYDROCHLORIDE [Concomitant]

REACTIONS (2)
  - DRUG INTERACTION [None]
  - INTERNATIONAL NORMALISED RATIO INCREASED [None]
